FAERS Safety Report 9715447 (Version 1)
Quarter: 2013Q4

REPORT INFORMATION
  Report Type: Spontaneous
  Country: CA (occurrence: CA)
  Receive Date: 20131127
  Receipt Date: 20131127
  Transmission Date: 20140711
  Serious: Yes (Life-Threatening, Hospitalization)
  Sender: FDA-Public Use
  Company Number: CA-AMGEN-CANSP2013083548

PATIENT
  Age: 69 Year
  Sex: Female
  Weight: 65 kg

DRUGS (18)
  1. NEUPOGEN [Suspect]
     Indication: PRODUCT USED FOR UNKNOWN INDICATION
     Dosage: 300 MICROGRAM, 1 EVERY 1 DAY
     Route: 058
  2. NEUPOGEN [Suspect]
     Dosage: 300 MICROGRAM, UNK
     Route: 065
  3. DOCETAXEL [Suspect]
     Indication: PRODUCT USED FOR UNKNOWN INDICATION
     Dosage: 134 MILIGRAM, UNK
     Route: 065
  4. DOCETAXEL [Suspect]
     Dosage: 172 MILIGRAM, UNK
     Route: 065
  5. CLEAR EYES                         /00419602/ [Concomitant]
     Dosage: UNK
     Route: 047
  6. DEXAMETHASONE [Concomitant]
     Dosage: UNK
  7. DIFLUCAN [Concomitant]
     Dosage: UNK
  8. ASA [Concomitant]
     Dosage: UNK
  9. FLAGYL                             /00012501/ [Concomitant]
     Dosage: UNK
  10. HERCEPTIN [Concomitant]
     Dosage: UNK
  11. IMOVANE [Concomitant]
     Dosage: UNK
  12. METOCLOPRAMIDE [Concomitant]
     Dosage: UNK
  13. MORPHINE [Concomitant]
     Dosage: UNK
  14. NYSTATIN [Concomitant]
     Dosage: UNK
  15. OXYCODONE / ACETAMINOPHEN [Concomitant]
     Dosage: UNK
  16. POTASSIUM [Concomitant]
     Dosage: UNK
  17. TYLENOL                            /00020001/ [Concomitant]
     Dosage: UNK
  18. ZOFRAN                             /00955301/ [Concomitant]
     Dosage: UNK

REACTIONS (2)
  - Febrile neutropenia [Unknown]
  - Pyrexia [Unknown]
